FAERS Safety Report 14560870 (Version 1)
Quarter: 2018Q1

REPORT INFORMATION
  Report Type: Report from Study
  Country: None (occurrence: ES)
  Receive Date: 20180222
  Receipt Date: 20180222
  Transmission Date: 20180509
  Serious: Yes (Hospitalization, Other)
  Sender: FDA-Public Use
  Company Number: ES-ABBVIE-18K-144-2245247-00

PATIENT
  Age: 77 Year
  Sex: Female
  Weight: 70 kg

DRUGS (1)
  1. DUODOPA [Suspect]
     Active Substance: CARBIDOPA\LEVODOPA
     Indication: PARKINSON^S DISEASE
     Route: 050
     Dates: start: 20180130, end: 2018

REACTIONS (9)
  - Stoma site infection [Recovering/Resolving]
  - Microangiopathy [Not Recovered/Not Resolved]
  - Pneumoperitoneum [Recovered/Resolved]
  - Dizziness [Recovering/Resolving]
  - Cellulitis [Unknown]
  - Hypotension [Recovering/Resolving]
  - Stoma site cellulitis [Recovered/Resolved]
  - Musculoskeletal pain [Recovering/Resolving]
  - Abdominal pain [Recovered/Resolved]

NARRATIVE: CASE EVENT DATE: 2018
